FAERS Safety Report 24849668 (Version 1)
Quarter: 2025Q1

REPORT INFORMATION
  Report Type: Other
  Country: US (occurrence: US)
  Receive Date: 20250116
  Receipt Date: 20250116
  Transmission Date: 20250409
  Serious: Yes (Other)
  Sender: Integrated Therapeutic Solutions
  Company Number: US-Integrated Therapeutic Solutions Inc.-2169120

PATIENT
  Age: 37 Year
  Sex: Male

DRUGS (1)
  1. PYLERA [Suspect]
     Active Substance: BISMUTH SUBCITRATE POTASSIUM\METRONIDAZOLE\TETRACYCLINE HYDROCHLORIDE
     Indication: Helicobacter infection

REACTIONS (1)
  - Drug ineffective [Unknown]
